FAERS Safety Report 24956673 (Version 1)
Quarter: 2025Q1

REPORT INFORMATION
  Report Type: Spontaneous
  Country: US (occurrence: US)
  Receive Date: 20250211
  Receipt Date: 20250211
  Transmission Date: 20250409
  Serious: No
  Sender: TEIKOKU
  Company Number: US-TPU-TPU-2025-00035

PATIENT
  Sex: Male

DRUGS (3)
  1. LIDOCAINE PATCH [Suspect]
     Active Substance: LIDOCAINE
     Indication: Intervertebral disc protrusion
     Dates: start: 202410
  2. LIDOCAINE PATCH [Suspect]
     Active Substance: LIDOCAINE
     Indication: Intervertebral disc protrusion
  3. LIDOCAINE PATCH [Suspect]
     Active Substance: LIDOCAINE
     Indication: Myalgia

REACTIONS (1)
  - Application site coldness [Unknown]
